FAERS Safety Report 6056573-9 (Version None)
Quarter: 2009Q1

REPORT INFORMATION
  Report Type: 
  Country: None (occurrence: None)
  Receive Date: 20090129
  Receipt Date: 20090120
  Transmission Date: 20090719
  Serious: No
  Sender: FDA-Public Use
  Company Number: US-JNJFOC-20090105261

PATIENT
  Sex: Female

DRUGS (2)
  1. ORTHO-NOVUM 1/50 21 [Suspect]
     Indication: OVARIAN CYST
     Route: 048
  2. UNSPECIFIED ORAL CONTRACEPTIVE [Suspect]
     Indication: OVARIAN CYST
     Route: 048

REACTIONS (2)
  - OFF LABEL USE [None]
  - THERAPEUTIC RESPONSE UNEXPECTED [None]
